FAERS Safety Report 21653039 (Version 1)
Quarter: 2022Q4

REPORT INFORMATION
  Report Type: Spontaneous
  Country: US (occurrence: US)
  Receive Date: 20221128
  Receipt Date: 20221128
  Transmission Date: 20230112
  Serious: Yes (Other)
  Sender: FDA-Public Use
  Company Number: US-ASCENDIS PHARMA-2022US001076

PATIENT

DRUGS (1)
  1. SKYTROFA [Suspect]
     Active Substance: LONAPEGSOMATROPIN-TCGD
     Indication: Product used for unknown indication
     Dosage: 7.6 MILLIGRAM
     Route: 065
     Dates: start: 202204

REACTIONS (1)
  - Idiopathic intracranial hypertension [Unknown]

NARRATIVE: CASE EVENT DATE: 20220601
